FAERS Safety Report 9507035 (Version 3)
Quarter: 2013Q4

REPORT INFORMATION
  Report Type: Spontaneous
  Country: IN (occurrence: None)
  Receive Date: 20130904
  Receipt Date: 20131008
  Transmission Date: 20140711
  Serious: Yes (Other)
  Sender: FDA-Public Use
  Company Number: AUR-APL-2013-07301

PATIENT
  Age: 22 Year
  Sex: Female

DRUGS (3)
  1. RISPERIDONE [Suspect]
     Indication: BIPOLAR DISORDER
     Dosage: 3 MG, 1 D, UNKNOWN
  2. LEVOSULPIRIDE [Suspect]
     Indication: BIPOLAR DISORDER
  3. CARBAMAZEPINE [Suspect]
     Indication: BIPOLAR DISORDER
     Dosage: 600 MG, 1 D, UNKNOWN

REACTIONS (4)
  - Rabbit syndrome [None]
  - Akathisia [None]
  - Muscle rigidity [None]
  - Tremor [None]
